FAERS Safety Report 5008347-5 (Version None)
Quarter: 2006Q2

REPORT INFORMATION
  Report Type: 
  Country: None (occurrence: None)
  Receive Date: 20060403
  Receipt Date: 20050203
  Transmission Date: 20061013
  Serious: No
  Sender: FDA-Public Use
  Company Number: 05-000085

PATIENT
  Age: 73 Year
  Sex: Female

DRUGS (1)
  1. ESTRACE [Suspect]
     Dosage: VAGINAL
     Route: 067

REACTIONS (1)
  - GENITAL PRURITUS FEMALE [None]
